FAERS Safety Report 7039011-9 (Version None)
Quarter: 2010Q4

REPORT INFORMATION
  Report Type: 
  Country: None (occurrence: None)
  Receive Date: 20101012
  Receipt Date: 20101004
  Transmission Date: 20110411
  Serious: Yes (Other)
  Sender: FDA-Public Use
  Company Number: GB-TEVA-250819ISR

PATIENT
  Age: 34 Year
  Sex: Female

DRUGS (2)
  1. SIMVASTATIN [Suspect]
  2. DRONEDARONE HCL [Suspect]

REACTIONS (3)
  - CHEST PAIN [None]
  - MYOSITIS [None]
  - PAIN IN EXTREMITY [None]
